FAERS Safety Report 10103314 (Version 1)
Quarter: 2014Q2

REPORT INFORMATION
  Report Type: Spontaneous
  Country: US (occurrence: US)
  Receive Date: 20140424
  Receipt Date: 20140424
  Transmission Date: 20141212
  Serious: Yes (Other)
  Sender: FDA-Public Use
  Company Number: US-BRISTOL-MYERS SQUIBB COMPANY-20241626

PATIENT
  Age: 70 Year
  Sex: Female

DRUGS (7)
  1. ELIQUIS [Suspect]
     Dates: start: 20131223
  2. DIOVAN [Concomitant]
  3. SIMVASTATIN [Concomitant]
     Dosage: NIGHT ONLY
  4. COQ10 [Concomitant]
  5. VITAMIN D3 [Concomitant]
  6. ZINC [Concomitant]
  7. COPPER [Concomitant]

REACTIONS (6)
  - Transient ischaemic attack [Not Recovered/Not Resolved]
  - Headache [Unknown]
  - Pruritus [Unknown]
  - Dry mouth [Unknown]
  - Alopecia [Unknown]
  - Dyspnoea [Unknown]
